APPROVED DRUG PRODUCT: ROCEPHIN W/ DEXTROSE IN PLASTIC CONTAINER
Active Ingredient: CEFTRIAXONE SODIUM
Strength: EQ 40MG BASE/ML **Federal Register determination that product was not discontinued or withdrawn for safety or effectiveness reasons**
Dosage Form/Route: INJECTABLE;INJECTION
Application: N050624 | Product #003
Applicant: HOFFMANN LA ROCHE INC
Approved: Feb 11, 1987 | RLD: Yes | RS: No | Type: DISCN